FAERS Safety Report 9164164 (Version 1)
Quarter: 2013Q1

REPORT INFORMATION
  Report Type: Spontaneous
  Country: US (occurrence: None)
  Receive Date: 20130313
  Receipt Date: 20130313
  Transmission Date: 20140127
  Serious: Yes (Hospitalization)
  Sender: FDA-Public Use
  Company Number: None

PATIENT
  Age: 74 Year
  Sex: Female
  Weight: 69 kg

DRUGS (14)
  1. WARFARIN [Suspect]
     Indication: ATRIAL FIBRILLATION
     Route: 048
     Dates: start: 2010
  2. ASPIRIN [Suspect]
     Route: 048
  3. DOCUSATE CALCIUM [Concomitant]
  4. METOPROLOL XL [Concomitant]
  5. FUROSEMIDE [Concomitant]
  6. ATORVASTATIN [Concomitant]
  7. DILTIAZEM XR [Concomitant]
  8. ESOMEPRAZOLE [Concomitant]
  9. FLUOXETINE [Concomitant]
  10. FERROUS SULFATE [Concomitant]
  11. LISINOPRIL [Concomitant]
  12. METOLAZONE [Concomitant]
  13. KCL [Concomitant]
  14. LIDOCAINE [Concomitant]

REACTIONS (4)
  - International normalised ratio increased [None]
  - Gastrointestinal haemorrhage [None]
  - Gastroenteritis [None]
  - Arteriovenous malformation [None]
